FAERS Safety Report 9089491 (Version 1)
Quarter: 2013Q1

REPORT INFORMATION
  Report Type: Spontaneous
  Country: US (occurrence: US)
  Receive Date: 20130201
  Receipt Date: 20130201
  Transmission Date: 20140127
  Serious: Yes (Other)
  Sender: FDA-Public Use
  Company Number: PHEH2013US002537

PATIENT
  Age: 7 Year
  Sex: Male

DRUGS (1)
  1. GLEEVEC [Suspect]
     Indication: NEUROFIBROMATOSIS
     Dosage: 400 MG, DAILY
     Route: 048
     Dates: start: 20120315, end: 20121228

REACTIONS (1)
  - Neurofibromatosis [Unknown]
